FAERS Safety Report 6636799-3 (Version None)
Quarter: 2010Q1

REPORT INFORMATION
  Report Type: 
  Country: None (occurrence: None)
  Receive Date: 20100316
  Receipt Date: 20100304
  Transmission Date: 20100710
  Serious: Yes (Hospitalization)
  Sender: FDA-Public Use
  Company Number: ES-PFIZER INC-2007081457

PATIENT
  Age: 74 Year
  Sex: Male

DRUGS (3)
  1. SUNITINIB MALATE [Suspect]
     Indication: METASTATIC RENAL CELL CARCINOMA
     Dosage: 50 MG, 1X/DAY
     Route: 048
     Dates: start: 20060703, end: 20070529
  2. OMEPRAZOLE [Concomitant]
     Dates: start: 20060814, end: 20070621
  3. PRIMPERAN INJ [Concomitant]
     Dates: start: 20060814, end: 20070621

REACTIONS (1)
  - CONVULSION [None]
